FAERS Safety Report 21032705 (Version 1)
Quarter: 2022Q3

REPORT INFORMATION
  Report Type: Spontaneous
  Country: FR (occurrence: FR)
  Receive Date: 20220701
  Receipt Date: 20220701
  Transmission Date: 20221026
  Serious: Yes (Hospitalization)
  Sender: FDA-Public Use
  Company Number: FR-MYLANLABS-2022M1048730

PATIENT
  Age: 90 Year
  Sex: Male

DRUGS (4)
  1. OLANZAPINE [Suspect]
     Active Substance: OLANZAPINE
     Indication: Chorea
     Dosage: 7.5 MILLIGRAM, QD
     Route: 065
  2. OLANZAPINE [Suspect]
     Active Substance: OLANZAPINE
     Indication: Ballismus
  3. TETRABENAZINE [Suspect]
     Active Substance: TETRABENAZINE
     Indication: Chorea
     Dosage: 75 MILLIGRAM, QD
     Route: 065
  4. TETRABENAZINE [Suspect]
     Active Substance: TETRABENAZINE
     Indication: Ballismus

REACTIONS (4)
  - Depressed mood [Unknown]
  - Suicidal ideation [Unknown]
  - Drug ineffective for unapproved indication [Unknown]
  - Off label use [Unknown]
